FAERS Safety Report 6804510-9 (Version None)
Quarter: 2010Q2

REPORT INFORMATION
  Report Type: 
  Country: None (occurrence: None)
  Receive Date: 20100628
  Receipt Date: 20061127
  Transmission Date: 20101027
  Serious: No
  Sender: FDA-Public Use
  Company Number: US-PFIZER INC-2007022864

PATIENT
  Sex: Male

DRUGS (4)
  1. CADUET [Suspect]
     Indication: BLOOD CHOLESTEROL INCREASED
     Dates: start: 20060401, end: 20060101
  2. CADUET [Suspect]
     Indication: BLOOD PRESSURE
  3. LISINOPRIL [Concomitant]
     Indication: BLOOD PRESSURE
  4. CHOLESTEROL- AND TRIGLYCERIDE REDUCERS [Concomitant]
     Indication: BLOOD CHOLESTEROL

REACTIONS (4)
  - BLOOD PRESSURE ABNORMAL [None]
  - LIPIDS ABNORMAL [None]
  - OEDEMA PERIPHERAL [None]
  - PARAESTHESIA [None]
